FAERS Safety Report 6140379-6 (Version None)
Quarter: 2009Q2

REPORT INFORMATION
  Report Type: 
  Country: None (occurrence: None)
  Receive Date: 20090401
  Receipt Date: 20090401
  Transmission Date: 20091009
  Serious: Yes (Other)
  Sender: FDA-Public Use
  Company Number: None

PATIENT
  Age: 20 Year
  Sex: Female
  Weight: 80.2867 kg

DRUGS (3)
  1. LEVAQUIN [Suspect]
     Indication: ANTIBIOTIC THERAPY
     Dosage: 1 TABLET ONCE DAILY PO
     Route: 048
     Dates: start: 20080908, end: 20080918
  2. LEVAQUIN [Suspect]
     Dosage: UNKNOWN IV DRIP
     Route: 041
     Dates: start: 20080904, end: 20080907
  3. . [Concomitant]

REACTIONS (4)
  - INTRA-UTERINE DEATH [None]
  - MATERNAL DRUGS AFFECTING FOETUS [None]
  - STILLBIRTH [None]
  - UMBILICAL CORD ABNORMALITY [None]
